FAERS Safety Report 16096781 (Version 1)
Quarter: 2019Q1

REPORT INFORMATION
  Report Type: Spontaneous
  Country: US (occurrence: US)
  Receive Date: 20190320
  Receipt Date: 20190320
  Transmission Date: 20190418
  Serious: No
  Sender: FDA-Public Use
  Company Number: US-JNJFOC-20190240386

PATIENT
  Sex: Female
  Weight: 74.84 kg

DRUGS (2)
  1. MENS ROGAINE EXTRA STRENGTH UNSCENTED [Suspect]
     Active Substance: MINOXIDIL
     Route: 061
  2. MENS ROGAINE EXTRA STRENGTH UNSCENTED [Suspect]
     Active Substance: MINOXIDIL
     Indication: ALOPECIA
     Dosage: 1/2-2/3 CAP FULL
     Route: 061

REACTIONS (4)
  - Wrong technique in product usage process [Unknown]
  - Product use issue [Unknown]
  - Intentional product misuse [Unknown]
  - Overdose [Unknown]
